FAERS Safety Report 10179366 (Version 1)
Quarter: 2014Q2

REPORT INFORMATION
  Report Type: Spontaneous
  Country: US (occurrence: None)
  Receive Date: 20140515
  Receipt Date: 20140515
  Transmission Date: 20141212
  Serious: Yes (Hospitalization)
  Sender: FDA-Public Use
  Company Number: UTC-048467

PATIENT
  Age: 74 Year
  Sex: Male

DRUGS (1)
  1. TYVASO (0.6 MILLIGRAM/MILLILITERS, AEROSOL FOR INHALTION) (TREPROSTINIL SODIUM) [Suspect]
     Indication: PULMONARY HYPERTENSION
     Dosage: 72 MCG 4 IN 1 D
     Route: 055
     Dates: start: 20121005

REACTIONS (3)
  - Rectal haemorrhage [None]
  - Vomiting [None]
  - Pneumonia [None]
